FAERS Safety Report 7219845-8 (Version None)
Quarter: 2011Q1

REPORT INFORMATION
  Report Type: 
  Country: None (occurrence: None)
  Receive Date: 20110111
  Receipt Date: 20101228
  Transmission Date: 20110831
  Serious: Yes (Death, Hospitalization)
  Sender: FDA-Public Use
  Company Number: DE-ROCHE-751480

PATIENT
  Sex: Male
  Weight: 100 kg

DRUGS (2)
  1. PREDNISOLONE [Suspect]
     Indication: RHEUMATOID ARTHRITIS
     Route: 048
     Dates: start: 20050301, end: 20100401
  2. TOCILIZUMAB [Suspect]
     Indication: RHEUMATOID ARTHRITIS
     Route: 042
     Dates: start: 20090303, end: 20091201

REACTIONS (3)
  - ULCER HAEMORRHAGE [None]
  - PERICARDIAL EFFUSION [None]
  - PNEUMONIA [None]
